FAERS Safety Report 5512047-2 (Version None)
Quarter: 2007Q4

REPORT INFORMATION
  Report Type: 
  Country: None (occurrence: None)
  Receive Date: 20071109
  Receipt Date: 20071018
  Transmission Date: 20080405
  Serious: No
  Sender: FDA-Public Use
  Company Number: US-BOEHRINGER INGELHEIM PHARMACEUTICALS, INC.-2007-BP-22976BP

PATIENT
  Age: 70 Year
  Sex: Female

DRUGS (18)
  1. MIRAPEX [Suspect]
     Indication: RESTLESS LEGS SYNDROME
     Route: 048
     Dates: start: 20020101
  2. ATENOLOL [Concomitant]
  3. INDOCIN [Concomitant]
  4. NEXIUM [Concomitant]
  5. LIPITOR [Concomitant]
  6. VICODIN [Concomitant]
  7. PROZAC [Concomitant]
  8. FLEXERIL [Concomitant]
  9. FLONASE [Concomitant]
  10. AMBIEN CR [Concomitant]
  11. MIRALAX [Concomitant]
  12. GLUCOSAMINE W/CHONDROITIN SULFATE [Concomitant]
  13. FERROUS SULFATE TAB [Concomitant]
  14. COQ10 [Concomitant]
  15. FOLIC ACID [Concomitant]
  16. VITAMIN CAP [Concomitant]
  17. HYDROCHLOROTHIAZIDE W/TRIAMTERENE [Concomitant]
  18. VITAMIN E [Concomitant]

REACTIONS (1)
  - FEELING JITTERY [None]
